FAERS Safety Report 5133740-X (Version None)
Quarter: 2006Q4

REPORT INFORMATION
  Report Type: 
  Country: None (occurrence: None)
  Receive Date: 20061024
  Receipt Date: 20061018
  Transmission Date: 20070319
  Serious: Yes (Death, Other)
  Sender: FDA-Public Use
  Company Number: JP-AVENTIS-200613270JP

PATIENT
  Sex: Male

DRUGS (6)
  1. TAXOTERE [Suspect]
     Indication: CHEMOTHERAPY
     Route: 041
  2. TAXOTERE [Suspect]
     Indication: PROSTATE CANCER
     Route: 041
  3. ESTRAMUSTINE [Suspect]
     Indication: CHEMOTHERAPY
     Route: 048
  4. ESTRAMUSTINE [Suspect]
     Indication: PROSTATE CANCER
     Route: 048
  5. CARBOPLATIN [Suspect]
     Indication: CHEMOTHERAPY
     Dosage: DOSE: AUC 6 (DAY1 IN EVERY 4-WEEK CYCLE)
     Route: 041
  6. CARBOPLATIN [Suspect]
     Indication: PROSTATE CANCER
     Dosage: DOSE: AUC 6 (DAY1 IN EVERY 4-WEEK CYCLE)
     Route: 041

REACTIONS (10)
  - ALOPECIA [None]
  - ANAEMIA [None]
  - ANOREXIA [None]
  - FATIGUE [None]
  - LEUKOPENIA [None]
  - MYELODYSPLASTIC SYNDROME [None]
  - OEDEMA [None]
  - PLEURAL EFFUSION [None]
  - PNEUMONITIS [None]
  - THROMBOCYTOPENIA [None]
